FAERS Safety Report 15494930 (Version 1)
Quarter: 2018Q4

REPORT INFORMATION
  Report Type: Spontaneous
  Country: IT (occurrence: IT)
  Receive Date: 20181012
  Receipt Date: 20181012
  Transmission Date: 20190205
  Serious: Yes (Hospitalization, Other)
  Sender: FDA-Public Use
  Company Number: IT-GLAXOSMITHKLINE-IT2017204127

PATIENT
  Age: 63 Year
  Sex: Male

DRUGS (2)
  1. DICLOFENAC [Suspect]
     Active Substance: DICLOFENAC
     Indication: ARTHRALGIA
     Dosage: 100 MG, UNK
     Route: 048
  2. NIMESULIDE [Interacting]
     Active Substance: NIMESULIDE
     Indication: ARTHRALGIA
     Dosage: 100 MG, UNK
     Route: 048

REACTIONS (4)
  - Haematemesis [Recovering/Resolving]
  - Drug interaction [Unknown]
  - Melaena [Recovering/Resolving]
  - Duodenal ulcer [Recovering/Resolving]
